FAERS Safety Report 15947168 (Version 1)
Quarter: 2019Q1

REPORT INFORMATION
  Report Type: Spontaneous
  Country: NL (occurrence: NL)
  Receive Date: 20190211
  Receipt Date: 20190211
  Transmission Date: 20190417
  Serious: Yes (Other)
  Sender: FDA-Public Use
  Company Number: NL-MYLANLABS-2019M1011813

PATIENT
  Age: 82 Year
  Sex: Male
  Weight: 98 kg

DRUGS (5)
  1. SPIRONOLACTONE. [Suspect]
     Active Substance: SPIRONOLACTONE
     Indication: CARDIAC DISORDER
     Dosage: 1 DOSAGE FORM, QD (1 STUKS PERDAG)
     Route: 048
     Dates: start: 20180710, end: 20180730
  2. FUROSEMIDE. [Concomitant]
     Active Substance: FUROSEMIDE
     Dosage: UNK
  3. ADALAT [Concomitant]
     Active Substance: NIFEDIPINE
     Dosage: UNK
     Route: 048
  4. ASCAL BRISPER CARDIO-NEURO [Concomitant]
     Active Substance: ASPIRIN\CARBASPIRIN CALCIUM
     Dosage: UNK
  5. COVEREX AS [Concomitant]
     Active Substance: PERINDOPRIL ARGININE
     Dosage: UNK

REACTIONS (1)
  - Monoplegia [Recovered/Resolved]

NARRATIVE: CASE EVENT DATE: 20180717
